FAERS Safety Report 14319601 (Version 2)
Quarter: 2018Q1

REPORT INFORMATION
  Report Type: Spontaneous
  Country: US (occurrence: BR)
  Receive Date: 20171222
  Receipt Date: 20180108
  Transmission Date: 20180509
  Serious: No
  Sender: FDA-Public Use
  Company Number: US-SUNOVION-2017SUN005410

PATIENT
  Sex: Female
  Weight: 55 kg

DRUGS (7)
  1. PREDNISONE. [Concomitant]
     Active Substance: PREDNISONE
     Dosage: 20 MG, UNK
  2. XARELTO [Concomitant]
     Active Substance: RIVAROXABAN
     Dosage: 5 MG, UNK
  3. PHARMATON [Concomitant]
     Active Substance: MINERALS\VITAMINS
     Dosage: UNK
  4. VIATINE [Concomitant]
     Active Substance: MONTELUKAST SODIUM
     Dosage: 10 MG, UNK
  5. BAMIFIX [Concomitant]
     Active Substance: BAMIFYLLINE HYDROCHLORIDE
     Dosage: 300 MG, UNK
  6. INDACATEROL AND GLYCOPYRROLATE [Suspect]
     Active Substance: GLYCOPYRROLATE\INDACATEROL MALEATE
     Indication: DYSPNOEA
     Dosage: 1 DF, QD (0.11/0.05MG)
     Route: 055
  7. FUROSEMIDE COMPOSTO [Concomitant]
     Dosage: 40 MG, UNK

REACTIONS (2)
  - Product use in unapproved indication [Unknown]
  - Throat irritation [Recovered/Resolved]
